FAERS Safety Report 4773044-8 (Version None)
Quarter: 2005Q3

REPORT INFORMATION
  Report Type: 
  Country: None (occurrence: None)
  Receive Date: 20050916
  Receipt Date: 20050906
  Transmission Date: 20060218
  Serious: Yes (Hospitalization)
  Sender: FDA-Public Use
  Company Number: CERZ-10992

PATIENT
  Age: 36 Year
  Sex: Female
  Weight: 108.6 kg

DRUGS (4)
  1. CEREZYME [Suspect]
     Indication: GAUCHER'S DISEASE
     Dosage: 9800 UNITS Q2WKS IV
     Route: 042
  2. CEREZYME [Suspect]
     Indication: GAUCHER'S DISEASE
     Dosage: 60 UG/KG Q2WKS IV
     Route: 042
     Dates: start: 20040501
  3. CEREZYME [Suspect]
     Indication: GAUCHER'S DISEASE
     Dosage: 30 U/KG  Q2WKS IV
     Route: 042
     Dates: start: 20031106, end: 20040501
  4. CEREZYME [Suspect]
     Indication: GAUCHER'S DISEASE
     Dates: start: 19970424, end: 20020101

REACTIONS (4)
  - BONE INFARCTION [None]
  - CATHETER RELATED INFECTION [None]
  - DRUG DOSE OMISSION [None]
  - FALL [None]
